FAERS Safety Report 5215481-3 (Version None)
Quarter: 2007Q1

REPORT INFORMATION
  Report Type: 
  Country: None (occurrence: None)
  Receive Date: 20070123
  Receipt Date: 20070117
  Transmission Date: 20070707
  Serious: Yes (Hospitalization, Other)
  Sender: FDA-Public Use
  Company Number: DE-BRACCO-BRO-009882

PATIENT
  Sex: Female

DRUGS (3)
  1. SOLUTRAST [Suspect]
     Route: 042
     Dates: start: 20051212, end: 20051212
  2. SOLUTRAST [Suspect]
     Indication: URETERIC DILATATION
     Route: 042
     Dates: start: 20051212, end: 20051212
  3. VIGANTOLETTEN [Concomitant]
     Route: 050

REACTIONS (3)
  - NEPHRITIS INTERSTITIAL [None]
  - RASH [None]
  - RENAL FAILURE ACUTE [None]
